FAERS Safety Report 11941542 (Version 2)
Quarter: 2016Q1

REPORT INFORMATION
  Report Type: Spontaneous
  Country: US (occurrence: US)
  Receive Date: 20160122
  Receipt Date: 20160128
  Transmission Date: 20160526
  Serious: Yes (Other)
  Sender: FDA-Public Use
  Company Number: US-SA-2016SA011916

PATIENT
  Age: 43 Year
  Sex: Female

DRUGS (1)
  1. LEMTRADA [Suspect]
     Active Substance: ALEMTUZUMAB
     Indication: MULTIPLE SCLEROSIS
     Route: 042
     Dates: start: 20150706, end: 20150710

REACTIONS (3)
  - Contusion [Unknown]
  - Platelet count decreased [Recovering/Resolving]
  - Autoimmune disorder [Unknown]

NARRATIVE: CASE EVENT DATE: 20150922
